FAERS Safety Report 9791440 (Version 14)
Quarter: 2014Q4

REPORT INFORMATION
  Report Type: Spontaneous
  Country: US (occurrence: US)
  Receive Date: 20140101
  Receipt Date: 20141104
  Transmission Date: 20150529
  Serious: Yes (Other)
  Sender: FDA-Public Use
  Company Number: PHEH2013US025189

PATIENT
  Age: 78 Year
  Sex: Female

DRUGS (128)
  1. RECLAST [Suspect]
     Active Substance: ZOLEDRONIC ACID
     Indication: OSTEOPOROSIS
     Dosage: 5 MG, ONCE A YEAR
     Route: 042
     Dates: start: 20130715
  2. PLAVIX [Concomitant]
     Active Substance: CLOPIDOGREL BISULFATE
     Dosage: 1 DF, QD
     Route: 065
     Dates: start: 20131227
  3. METOPROLOL [Concomitant]
     Active Substance: METOPROLOL
     Dosage: 25 MG, QD
     Route: 065
     Dates: start: 20120201
  4. METOPROLOL [Concomitant]
     Active Substance: METOPROLOL
     Dosage: 1 MG, QD
     Route: 065
     Dates: start: 20131227
  5. METOPROLOL [Concomitant]
     Active Substance: METOPROLOL
     Dosage: 25 MG, QD
     Route: 065
     Dates: start: 20140408
  6. CHOLEST-OFF [Concomitant]
     Dosage: 4 DF, QD
     Route: 065
     Dates: start: 20131227
  7. MULTI VITAMIN + MINERAL [Concomitant]
     Dosage: UNK
     Route: 065
     Dates: start: 20131227
  8. VITAMIN B COMPLEX [Concomitant]
     Active Substance: CYANOCOBALAMIN\DEXPANTHENOL\NIACINAMIDE\PYRIDOXINE HYDROCHLORIDE\RIBOFLAVIN 5^-PHOSPHATE SODIUM\THIAMINE HYDROCHLORIDE\VITAMIN B COMPLEX
     Dosage: UNK
     Route: 065
     Dates: start: 20140408
  9. FISH OIL [Concomitant]
     Active Substance: FISH OIL
     Dosage: UNK UKN, UNK
     Route: 065
     Dates: start: 20120417
  10. COQ10 [Concomitant]
     Active Substance: UBIDECARENONE
     Dosage: 10 MG, BID
     Route: 065
     Dates: start: 20121024
  11. COQ10 [Concomitant]
     Active Substance: UBIDECARENONE
     Dosage: 10 MG, BID
     Route: 065
     Dates: start: 20131101
  12. ASA [Concomitant]
     Active Substance: ASPIRIN
     Indication: PRODUCT USED FOR UNKNOWN INDICATION
     Dosage: 1 DF, QD
     Route: 065
     Dates: start: 20120201
  13. ASA [Concomitant]
     Active Substance: ASPIRIN
     Dosage: 1 DF, QD
     Route: 065
     Dates: start: 20120509
  14. ASA [Concomitant]
     Active Substance: ASPIRIN
     Dosage: 1 DF, QD
     Route: 065
     Dates: start: 20140408
  15. LIDODERM [Concomitant]
     Active Substance: LIDOCAINE
     Dosage: UNK UKN, UNK
     Route: 065
     Dates: start: 20120509
  16. CLOPIDOGREL [Concomitant]
     Active Substance: CLOPIDOGREL BISULFATE
     Indication: PRODUCT USED FOR UNKNOWN INDICATION
     Dosage: UNK
     Route: 065
  17. RECLAST [Suspect]
     Active Substance: ZOLEDRONIC ACID
     Indication: BONE DENSITY DECREASED
  18. SULFAMETHOXAZOLE AND TRIMETHOPRIM [Concomitant]
     Active Substance: SULFAMETHOXAZOLE\TRIMETHOPRIM
     Indication: PRODUCT USED FOR UNKNOWN INDICATION
     Dosage: UNK UNK, QHS
     Route: 065
  19. MULTI VITAMIN + MINERAL [Concomitant]
     Dosage: UNK
     Route: 065
     Dates: start: 20131101
  20. VITAMIN D [Concomitant]
     Active Substance: CHOLECALCIFEROL
     Dosage: 1000 MG, QD
     Route: 065
     Dates: start: 20120417
  21. VITAMIN D [Concomitant]
     Active Substance: CHOLECALCIFEROL
     Dosage: 1000 MG, QD
     Route: 065
     Dates: start: 20121024
  22. VITAMIN B COMPLEX [Concomitant]
     Active Substance: CYANOCOBALAMIN\DEXPANTHENOL\NIACINAMIDE\PYRIDOXINE HYDROCHLORIDE\RIBOFLAVIN 5^-PHOSPHATE SODIUM\THIAMINE HYDROCHLORIDE\VITAMIN B COMPLEX
     Dosage: UNK
     Route: 065
     Dates: start: 20131101
  23. VITAMIN E [Concomitant]
     Active Substance: .ALPHA.-TOCOPHEROL
     Dosage: UNK UKN, UNK
     Route: 065
     Dates: start: 20120417
  24. VITAMIN E [Concomitant]
     Active Substance: .ALPHA.-TOCOPHEROL
     Dosage: UNK UKN, UNK
     Route: 065
     Dates: start: 20140408
  25. CALCIUM [Concomitant]
     Active Substance: CALCIUM
     Dosage: UNK
     Route: 065
     Dates: start: 20131101
  26. CALCIUM [Concomitant]
     Active Substance: CALCIUM
     Dosage: UNK
     Route: 065
     Dates: start: 20131227
  27. ASA [Concomitant]
     Active Substance: ASPIRIN
     Dosage: 1 DF, QD
     Route: 065
     Dates: start: 20131227
  28. AMLODIPINE [Concomitant]
     Active Substance: AMLODIPINE BESYLATE
     Indication: PRODUCT USED FOR UNKNOWN INDICATION
     Dosage: UNK
     Route: 065
  29. GELNIQUE [Concomitant]
     Active Substance: OXYBUTYNIN\OXYBUTYNIN CHLORIDE
     Dosage: UNK UKN, UNK
     Dates: start: 20120509
  30. GELNIQUE [Concomitant]
     Active Substance: OXYBUTYNIN\OXYBUTYNIN CHLORIDE
     Dosage: UNK UKN, UNK
     Route: 065
     Dates: start: 20131227
  31. PLAVIX [Concomitant]
     Active Substance: CLOPIDOGREL BISULFATE
     Dosage: 1 DF, QD
     Route: 065
     Dates: start: 20131101
  32. METOPROLOL [Concomitant]
     Active Substance: METOPROLOL
     Dosage: 25 MG, QD
     Route: 065
     Dates: start: 20120509
  33. METOPROLOL [Concomitant]
     Active Substance: METOPROLOL
     Dosage: 25 MG, QD
     Route: 065
     Dates: start: 20121024
  34. SULFAMETHOXAZOLE AND TRIMETHOPRIM [Concomitant]
     Active Substance: SULFAMETHOXAZOLE\TRIMETHOPRIM
     Dosage: UNK UNK, QHS
     Route: 065
     Dates: start: 20120417
  35. LEVOTHYROXINE [Concomitant]
     Active Substance: LEVOTHYROXINE
     Dosage: 1 DF, QD
     Route: 065
     Dates: start: 20120417
  36. LEVOTHYROXINE [Concomitant]
     Active Substance: LEVOTHYROXINE
     Dosage: 1 DF, QD
     Route: 065
     Dates: start: 20120509
  37. AMLODIPINE BESYLATE. [Concomitant]
     Active Substance: AMLODIPINE BESYLATE
     Dosage: 1 DF, QD
     Route: 065
     Dates: start: 20131227
  38. MULTI VITAMIN + MINERAL [Concomitant]
     Dosage: UNK
     Route: 065
     Dates: start: 20140408
  39. VITAMIN B COMPLEX [Concomitant]
     Active Substance: CYANOCOBALAMIN\DEXPANTHENOL\NIACINAMIDE\PYRIDOXINE HYDROCHLORIDE\RIBOFLAVIN 5^-PHOSPHATE SODIUM\THIAMINE HYDROCHLORIDE\VITAMIN B COMPLEX
     Dosage: UNK
     Route: 065
     Dates: start: 20121024
  40. VITAMIN B COMPLEX [Concomitant]
     Active Substance: CYANOCOBALAMIN\DEXPANTHENOL\NIACINAMIDE\PYRIDOXINE HYDROCHLORIDE\RIBOFLAVIN 5^-PHOSPHATE SODIUM\THIAMINE HYDROCHLORIDE\VITAMIN B COMPLEX
     Dosage: UNK
     Route: 065
     Dates: start: 20131227
  41. VITAMIN E [Concomitant]
     Active Substance: .ALPHA.-TOCOPHEROL
     Dosage: UNK UKN, UNK
     Route: 065
     Dates: start: 20121024
  42. FISH OIL [Concomitant]
     Active Substance: FISH OIL
     Dosage: UNK UKN, UNK
     Route: 065
     Dates: start: 20120509
  43. ASA [Concomitant]
     Active Substance: ASPIRIN
     Dosage: 1 DF, QD
     Route: 065
     Dates: start: 20120417
  44. GELNIQUE [Concomitant]
     Active Substance: OXYBUTYNIN\OXYBUTYNIN CHLORIDE
     Indication: PRODUCT USED FOR UNKNOWN INDICATION
     Dosage: UNK UKN, UNK
     Route: 065
     Dates: start: 20120201
  45. LIDODERM [Concomitant]
     Active Substance: LIDOCAINE
     Indication: PRODUCT USED FOR UNKNOWN INDICATION
     Dosage: UNK UKN, UNK
     Route: 065
     Dates: start: 20120201
  46. LIDODERM [Concomitant]
     Active Substance: LIDOCAINE
     Dosage: UNK UKN, UNK
     Route: 065
     Dates: start: 20121024
  47. LIDODERM [Concomitant]
     Active Substance: LIDOCAINE
     Dosage: UNK UKN, UNK
     Route: 065
     Dates: start: 20131101
  48. PLAVIX [Concomitant]
     Active Substance: CLOPIDOGREL BISULFATE
     Dosage: 1 DF, QD
     Route: 065
     Dates: start: 20140408
  49. CHOLEST-OFF [Concomitant]
     Dosage: 4 DF, QD
     Route: 065
     Dates: start: 20120509
  50. CHOLEST-OFF [Concomitant]
     Dosage: 4 DF, QD
     Route: 065
     Dates: start: 20121024
  51. SULFAMETHOXAZOLE AND TRIMETHOPRIM [Concomitant]
     Active Substance: SULFAMETHOXAZOLE\TRIMETHOPRIM
     Dosage: UNK UNK, QHS
     Route: 065
     Dates: start: 20121024
  52. VITAMIN D [Concomitant]
     Active Substance: CHOLECALCIFEROL
     Dosage: 1000 MG, QD
     Route: 065
     Dates: start: 20140408
  53. VITAMIN B COMPLEX [Concomitant]
     Active Substance: CYANOCOBALAMIN\DEXPANTHENOL\NIACINAMIDE\PYRIDOXINE HYDROCHLORIDE\RIBOFLAVIN 5^-PHOSPHATE SODIUM\THIAMINE HYDROCHLORIDE\VITAMIN B COMPLEX
     Dosage: UNK
     Route: 065
     Dates: start: 20120509
  54. VITAMIN E [Concomitant]
     Active Substance: .ALPHA.-TOCOPHEROL
     Dosage: UNK UKN, UNK
     Route: 065
     Dates: start: 20120509
  55. VITAMIN E [Concomitant]
     Active Substance: .ALPHA.-TOCOPHEROL
     Dosage: UNK UKN, UNK
     Route: 065
     Dates: start: 20131101
  56. FISH OIL [Concomitant]
     Active Substance: FISH OIL
     Dosage: UNK UKN, UNK
     Route: 065
     Dates: start: 20131227
  57. CALCIUM [Concomitant]
     Active Substance: CALCIUM
     Dosage: UNK
     Route: 065
     Dates: start: 20120509
  58. CALCIUM [Concomitant]
     Active Substance: CALCIUM
     Dosage: UNK
     Route: 065
     Dates: start: 20121024
  59. COQ10 [Concomitant]
     Active Substance: UBIDECARENONE
     Indication: PRODUCT USED FOR UNKNOWN INDICATION
     Dosage: 10 MG, BID
     Route: 065
     Dates: start: 20120201
  60. COQ10 [Concomitant]
     Active Substance: UBIDECARENONE
     Dosage: 10 MG, BID
     Route: 065
     Dates: start: 20131227
  61. COQ10 [Concomitant]
     Active Substance: UBIDECARENONE
     Dosage: 10 MG, BID
     Route: 065
     Dates: start: 20140408
  62. ASA [Concomitant]
     Active Substance: ASPIRIN
     Dosage: 1 DF, QD
     Route: 065
     Dates: start: 20121024
  63. METOPROLOL [Concomitant]
     Active Substance: METOPROLOL
     Dosage: 25 MG, QD
     Route: 065
     Dates: start: 20131101
  64. SULFAMETHOXAZOLE AND TRIMETHOPRIM [Concomitant]
     Active Substance: SULFAMETHOXAZOLE\TRIMETHOPRIM
     Dosage: UNK UNK, QHS
     Route: 065
     Dates: start: 20120509
  65. LEVOTHYROXINE [Concomitant]
     Active Substance: LEVOTHYROXINE
     Dosage: 1 DF, QD
     Route: 065
     Dates: start: 20121024
  66. AMLODIPINE BESYLATE. [Concomitant]
     Active Substance: AMLODIPINE BESYLATE
     Dosage: 1 DF, QD
     Route: 065
     Dates: start: 20120509
  67. CRESTOR [Concomitant]
     Active Substance: ROSUVASTATIN CALCIUM
     Dosage: 1 DF, QD
     Route: 065
     Dates: start: 20140408
  68. MULTI VITAMIN + MINERAL [Concomitant]
     Dosage: UNK
     Route: 065
     Dates: start: 20120509
  69. MULTI VITAMIN + MINERAL [Concomitant]
     Dosage: UNK
     Route: 065
     Dates: start: 20121024
  70. VITAMIN D [Concomitant]
     Active Substance: CHOLECALCIFEROL
     Dosage: 1000 MG, QD
     Route: 065
     Dates: start: 20120509
  71. VITAMIN D [Concomitant]
     Active Substance: CHOLECALCIFEROL
     Dosage: 1000 MG, QD
     Route: 065
     Dates: start: 20131101
  72. VITAMIN E [Concomitant]
     Active Substance: .ALPHA.-TOCOPHEROL
     Indication: PRODUCT USED FOR UNKNOWN INDICATION
     Dosage: 400 IU, UNK
     Route: 065
     Dates: start: 20120201
  73. VITAMIN E [Concomitant]
     Active Substance: .ALPHA.-TOCOPHEROL
     Dosage: UNK UKN, UNK
     Route: 065
     Dates: start: 20131227
  74. FISH OIL [Concomitant]
     Active Substance: FISH OIL
     Indication: PRODUCT USED FOR UNKNOWN INDICATION
     Dosage: 1000 MG
     Route: 065
  75. FISH OIL [Concomitant]
     Active Substance: FISH OIL
     Dosage: UNK UKN, UNK
     Route: 065
     Dates: start: 20121024
  76. CALCIUM [Concomitant]
     Active Substance: CALCIUM
     Indication: PRODUCT USED FOR UNKNOWN INDICATION
     Dosage: UNK
     Route: 065
     Dates: start: 20120201
  77. GELNIQUE [Concomitant]
     Active Substance: OXYBUTYNIN\OXYBUTYNIN CHLORIDE
     Dosage: UNK UKN, UNK
     Route: 065
     Dates: start: 20120417
  78. GELNIQUE [Concomitant]
     Active Substance: OXYBUTYNIN\OXYBUTYNIN CHLORIDE
     Dosage: UNK UKN, UNK
     Route: 065
     Dates: start: 20140408
  79. LIDODERM [Concomitant]
     Active Substance: LIDOCAINE
     Dosage: UNK UKN, UNK
     Route: 065
     Dates: start: 20131227
  80. LIDODERM [Concomitant]
     Active Substance: LIDOCAINE
     Dosage: UNK UKN, UNK
     Route: 065
     Dates: start: 20140408
  81. PLAVIX [Concomitant]
     Active Substance: CLOPIDOGREL BISULFATE
     Indication: PRODUCT USED FOR UNKNOWN INDICATION
     Dosage: 1 DF, QD
     Route: 065
     Dates: start: 20120201
  82. PLAVIX [Concomitant]
     Active Substance: CLOPIDOGREL BISULFATE
     Dosage: 1 DF, QD
     Route: 065
     Dates: start: 20120417
  83. PLAVIX [Concomitant]
     Active Substance: CLOPIDOGREL BISULFATE
     Dosage: 1 DF, QD
     Route: 065
     Dates: start: 20120509
  84. METOPROLOL [Concomitant]
     Active Substance: METOPROLOL
     Dosage: 25 MG, QD
     Route: 065
     Dates: start: 20120417
  85. CHOLEST-OFF [Concomitant]
     Indication: PRODUCT USED FOR UNKNOWN INDICATION
     Dosage: 4 DF, QD
     Route: 065
     Dates: start: 20120201
  86. SULFAMETHOXAZOLE AND TRIMETHOPRIM [Concomitant]
     Active Substance: SULFAMETHOXAZOLE\TRIMETHOPRIM
     Dosage: UNK UNK, QHS
     Route: 065
     Dates: start: 20140408
  87. LEVOTHYROXINE [Concomitant]
     Active Substance: LEVOTHYROXINE
     Indication: PRODUCT USED FOR UNKNOWN INDICATION
     Dosage: 1 DF, QD
     Route: 065
     Dates: start: 20120201
  88. LEVOTHYROXINE [Concomitant]
     Active Substance: LEVOTHYROXINE
     Dosage: 1 DF, QD
     Route: 065
     Dates: start: 20140408
  89. AMLODIPINE BESYLATE. [Concomitant]
     Active Substance: AMLODIPINE BESYLATE
     Dosage: 1 DF, QD
     Route: 065
     Dates: start: 20120417
  90. AMLODIPINE BESYLATE. [Concomitant]
     Active Substance: AMLODIPINE BESYLATE
     Dosage: 1 DF, QD
     Route: 065
     Dates: start: 20121024
  91. CRESTOR [Concomitant]
     Active Substance: ROSUVASTATIN CALCIUM
     Dosage: 1 DF, QD
     Route: 065
     Dates: start: 20131227
  92. VITAMIN D [Concomitant]
     Active Substance: CHOLECALCIFEROL
     Indication: PRODUCT USED FOR UNKNOWN INDICATION
     Dosage: 1000 MG, QD
     Route: 065
     Dates: start: 20120201
  93. VITAMIN D [Concomitant]
     Active Substance: CHOLECALCIFEROL
     Dosage: 1000 MG, QD
     Route: 065
     Dates: start: 20131227
  94. VITAMIN E [Concomitant]
     Active Substance: .ALPHA.-TOCOPHEROL
     Dosage: UNK UKN, UNK
     Route: 065
     Dates: start: 20120417
  95. FISH OIL [Concomitant]
     Active Substance: FISH OIL
     Dosage: UNK UKN, UNK
     Route: 065
     Dates: start: 20140408
  96. CALCIUM [Concomitant]
     Active Substance: CALCIUM
     Dosage: UNK
     Route: 065
     Dates: start: 20120417
  97. ASPIRIN. [Concomitant]
     Active Substance: ASPIRIN
     Indication: PRODUCT USED FOR UNKNOWN INDICATION
     Dosage: UNK UKN, UNK
     Route: 065
  98. VITAMIN C [Concomitant]
     Active Substance: ASCORBIC ACID
     Indication: PRODUCT USED FOR UNKNOWN INDICATION
     Dosage: UNK UKN, UNK
     Route: 065
  99. ASA [Concomitant]
     Active Substance: ASPIRIN
     Dosage: 1 DF, QD
     Route: 065
     Dates: start: 20131101
  100. LIDODERM [Concomitant]
     Active Substance: LIDOCAINE
     Dosage: UNK UKN, UNK
     Route: 065
     Dates: start: 20120414
  101. METOPROLOL [Concomitant]
     Active Substance: METOPROLOL
     Indication: PRODUCT USED FOR UNKNOWN INDICATION
     Dosage: UNK
     Route: 065
  102. CHOLEST-OFF [Concomitant]
     Dosage: 4 DF, QD
     Route: 065
     Dates: start: 20131101
  103. CHOLEST-OFF [Concomitant]
     Dosage: 4 DF, QD
     Route: 065
     Dates: start: 20140408
  104. SULFAMETHOXAZOLE AND TRIMETHOPRIM [Concomitant]
     Active Substance: SULFAMETHOXAZOLE\TRIMETHOPRIM
     Dosage: UNK UNK, QHS
     Route: 065
     Dates: start: 20131101
  105. SULFAMETHOXAZOLE AND TRIMETHOPRIM [Concomitant]
     Active Substance: SULFAMETHOXAZOLE\TRIMETHOPRIM
     Dosage: UNK UNK, QHS
     Route: 065
     Dates: start: 20131227
  106. CRESTOR [Concomitant]
     Active Substance: ROSUVASTATIN CALCIUM
     Indication: PRODUCT USED FOR UNKNOWN INDICATION
     Dosage: 1 DF, QD
     Route: 065
     Dates: start: 20120417
  107. CRESTOR [Concomitant]
     Active Substance: ROSUVASTATIN CALCIUM
     Dosage: 1 DF, QD
     Route: 065
     Dates: start: 20120509
  108. MULTI VITAMIN + MINERAL [Concomitant]
     Indication: PRODUCT USED FOR UNKNOWN INDICATION
     Dosage: UNK
     Route: 065
     Dates: start: 20120201
  109. VITAMIN B COMPLEX [Concomitant]
     Active Substance: CYANOCOBALAMIN\DEXPANTHENOL\NIACINAMIDE\PYRIDOXINE HYDROCHLORIDE\RIBOFLAVIN 5^-PHOSPHATE SODIUM\THIAMINE HYDROCHLORIDE\VITAMIN B COMPLEX
     Indication: PRODUCT USED FOR UNKNOWN INDICATION
     Dosage: UNK
     Route: 065
     Dates: start: 20120201
  110. GELNIQUE [Concomitant]
     Active Substance: OXYBUTYNIN\OXYBUTYNIN CHLORIDE
     Dosage: UNK UKN, UNK
     Route: 065
     Dates: start: 20121024
  111. PLAVIX [Concomitant]
     Active Substance: CLOPIDOGREL BISULFATE
     Dosage: 1 DF, QD
     Route: 065
     Dates: start: 20121024
  112. CHOLEST-OFF [Concomitant]
     Dosage: 4 DF, QD
     Route: 065
     Dates: start: 20120417
  113. SULFAMETHOXAZOLE AND TRIMETHOPRIM [Concomitant]
     Active Substance: SULFAMETHOXAZOLE\TRIMETHOPRIM
     Dosage: UNK UNK, QHS
     Route: 065
     Dates: start: 20120201
  114. LEVOTHYROXINE [Concomitant]
     Active Substance: LEVOTHYROXINE
     Dosage: 1 DF, QD
     Route: 065
     Dates: start: 20131101
  115. LEVOTHYROXINE [Concomitant]
     Active Substance: LEVOTHYROXINE
     Dosage: 1 DF, QD
     Route: 065
     Dates: start: 20131227
  116. AMLODIPINE BESYLATE. [Concomitant]
     Active Substance: AMLODIPINE BESYLATE
     Indication: PRODUCT USED FOR UNKNOWN INDICATION
     Dosage: 1 DF, QD
     Route: 065
     Dates: start: 20120201
  117. AMLODIPINE BESYLATE. [Concomitant]
     Active Substance: AMLODIPINE BESYLATE
     Dosage: 1 DF, QD
     Route: 065
     Dates: start: 20131101
  118. AMLODIPINE BESYLATE. [Concomitant]
     Active Substance: AMLODIPINE BESYLATE
     Dosage: 1 DF, QD
     Route: 065
     Dates: start: 20140408
  119. CRESTOR [Concomitant]
     Active Substance: ROSUVASTATIN CALCIUM
     Dosage: 1 DF, QD
     Route: 065
     Dates: start: 20121024
  120. CRESTOR [Concomitant]
     Active Substance: ROSUVASTATIN CALCIUM
     Dosage: 1 DF, QD
     Route: 065
     Dates: start: 20131101
  121. MULTI VITAMIN + MINERAL [Concomitant]
     Dosage: UNK
     Route: 065
     Dates: start: 20120417
  122. VITAMIN B COMPLEX [Concomitant]
     Active Substance: CYANOCOBALAMIN\DEXPANTHENOL\NIACINAMIDE\PYRIDOXINE HYDROCHLORIDE\RIBOFLAVIN 5^-PHOSPHATE SODIUM\THIAMINE HYDROCHLORIDE\VITAMIN B COMPLEX
     Dosage: UNK
     Route: 065
     Dates: start: 20120417
  123. FISH OIL [Concomitant]
     Active Substance: FISH OIL
     Dosage: UNK UKN, UNK
     Route: 065
     Dates: start: 20120201
  124. FISH OIL [Concomitant]
     Active Substance: FISH OIL
     Dosage: UNK UKN, UNK
     Route: 065
     Dates: start: 20131101
  125. CALCIUM [Concomitant]
     Active Substance: CALCIUM
     Dosage: UNK
     Route: 065
     Dates: start: 20140408
  126. COQ10 [Concomitant]
     Active Substance: UBIDECARENONE
     Dosage: 10 MG, BID
     Route: 065
     Dates: start: 20120417
  127. COQ10 [Concomitant]
     Active Substance: UBIDECARENONE
     Dosage: 10 MG, BID
     Route: 065
     Dates: start: 20120509
  128. GELNIQUE [Concomitant]
     Active Substance: OXYBUTYNIN\OXYBUTYNIN CHLORIDE
     Dosage: UNK UKN, UNK
     Route: 065
     Dates: start: 20131101

REACTIONS (44)
  - Depressed mood [Recovered/Resolved]
  - Oedema mouth [Recovered/Resolved]
  - Decreased appetite [Recovered/Resolved]
  - Myalgia [Recovered/Resolved]
  - Oedema peripheral [Recovered/Resolved]
  - Pain in jaw [Recovered/Resolved]
  - Atrial fibrillation [Recovered/Resolved]
  - Weight decreased [Recovered/Resolved]
  - Back pain [Recovered/Resolved]
  - Intervertebral disc protrusion [Recovered/Resolved]
  - Movement disorder [Recovered/Resolved]
  - Decreased activity [Recovered/Resolved]
  - Limb discomfort [Recovered/Resolved]
  - Muscle spasms [Recovered/Resolved]
  - Basedow^s disease [Recovered/Resolved]
  - Muscle tightness [Recovered/Resolved]
  - Frustration [Recovered/Resolved]
  - Toothache [Recovered/Resolved]
  - Bone pain [Recovered/Resolved]
  - Asthenia [Recovered/Resolved]
  - Blood pressure systolic increased [Recovered/Resolved]
  - Eating disorder [Recovered/Resolved]
  - Dental caries [Recovered/Resolved]
  - Limb injury [Recovered/Resolved]
  - Oral pain [Recovered/Resolved]
  - Pain in extremity [Recovered/Resolved]
  - Arthralgia [Recovered/Resolved]
  - Renal cyst [Recovered/Resolved]
  - Tooth fracture [Recovered/Resolved]
  - Feeling hot [Recovered/Resolved]
  - Stress [Recovered/Resolved]
  - Dysphemia [Recovered/Resolved]
  - Alopecia [Recovered/Resolved]
  - Mastication disorder [Recovered/Resolved]
  - Oral mucosal erythema [Recovered/Resolved]
  - Tooth disorder [Recovered/Resolved]
  - Fatigue [Recovered/Resolved]
  - Bone density decreased [Recovered/Resolved]
  - Peripheral arterial occlusive disease [Recovered/Resolved]
  - Muscle disorder [Recovered/Resolved]
  - Sensitivity of teeth [Recovered/Resolved]
  - Feeling abnormal [Recovered/Resolved]
  - Stomatitis [Recovered/Resolved]
  - Jaw disorder [Recovered/Resolved]

NARRATIVE: CASE EVENT DATE: 201307
